FAERS Safety Report 19430844 (Version 1)
Quarter: 2021Q2

REPORT INFORMATION
  Report Type: Report from Study
  Country: ES (occurrence: ES)
  Receive Date: 20210617
  Receipt Date: 20210617
  Transmission Date: 20210717
  Serious: Yes (Other)
  Sender: FDA-Public Use
  Company Number: NVSC2021ES130877

PATIENT

DRUGS (3)
  1. GALVUS [Suspect]
     Active Substance: VILDAGLIPTIN
     Indication: PRODUCT USED FOR UNKNOWN INDICATION
     Dosage: UNK
     Route: 065
  2. METFORMIN [Suspect]
     Active Substance: METFORMIN HYDROCHLORIDE
     Indication: PRODUCT USED FOR UNKNOWN INDICATION
     Route: 065
  3. EUCREAS [Suspect]
     Active Substance: METFORMIN HYDROCHLORIDE\VILDAGLIPTIN
     Indication: PRODUCT USED FOR UNKNOWN INDICATION
     Dosage: UNK
     Route: 065

REACTIONS (10)
  - Blood cholesterol increased [Unknown]
  - Blood triglycerides increased [Unknown]
  - Myocardial infarction [Unknown]
  - Lipids abnormal [Unknown]
  - Coronary artery disease [Unknown]
  - Cerebrovascular accident [Unknown]
  - Anxiety [Unknown]
  - Transient ischaemic attack [Unknown]
  - Injection site pain [Unknown]
  - Angina pectoris [Unknown]
